FAERS Safety Report 22031688 (Version 1)
Quarter: 2023Q1

REPORT INFORMATION
  Report Type: Report from Study
  Country: US (occurrence: US)
  Receive Date: 20230224
  Receipt Date: 20230224
  Transmission Date: 20230417
  Serious: Yes (Other)
  Sender: FDA-Public Use
  Company Number: US-BIOGEN-2023BI01189145

PATIENT
  Sex: Female

DRUGS (1)
  1. TYSABRI [Suspect]
     Active Substance: NATALIZUMAB
     Indication: Multiple sclerosis
     Route: 050
     Dates: start: 20130104, end: 20140617

REACTIONS (6)
  - Cerebrovascular accident [Unknown]
  - Motor dysfunction [Unknown]
  - Dysarthria [Recovered/Resolved]
  - Multiple sclerosis relapse [Unknown]
  - Tremor [Unknown]
  - Headache [Unknown]
